FAERS Safety Report 20350640 (Version 1)
Quarter: 2022Q1

REPORT INFORMATION
  Report Type: Spontaneous
  Country: US (occurrence: US)
  Receive Date: 20220119
  Receipt Date: 20220119
  Transmission Date: 20220423
  Serious: No
  Sender: FDA-Public Use
  Company Number: US-SA-SAC20220113000894

PATIENT
  Age: 63 Year
  Sex: Female

DRUGS (38)
  1. DUPIXENT [Suspect]
     Active Substance: DUPILUMAB
     Indication: Eczema
     Dosage: 300 MG, QOW
     Route: 058
     Dates: start: 20211001
  2. ASPIRIN [Concomitant]
     Active Substance: ASPIRIN
     Dosage: 81 MG
  3. BENADRYL DR [Concomitant]
  4. LORATADINE [Concomitant]
     Active Substance: LORATADINE
  5. CULTURELLE [Concomitant]
     Active Substance: LACTOBACILLUS RHAMNOSUS
     Dosage: UNK
  6. CULTURELLE [Concomitant]
     Active Substance: LACTOBACILLUS RHAMNOSUS
  7. ELIQUIS [Concomitant]
     Active Substance: APIXABAN
     Dosage: 5 MG
  8. FLECAINIDE [Concomitant]
     Active Substance: FLECAINIDE
     Dosage: 50 MG
  9. FLECAINIDE [Concomitant]
     Active Substance: FLECAINIDE
  10. FLONASE [Concomitant]
     Active Substance: FLUTICASONE PROPIONATE
     Dosage: 50 UG
  11. LYRICA [Concomitant]
     Active Substance: PREGABALIN
     Dosage: UNK
  12. LYRICA [Concomitant]
     Active Substance: PREGABALIN
  13. PANTOPRAZOLE [Concomitant]
     Active Substance: PANTOPRAZOLE
     Indication: Gastrooesophageal reflux disease
  14. PANTOPRAZOLE [Concomitant]
     Active Substance: PANTOPRAZOLE
     Indication: Oesophagitis
  15. PANTOPRAZOLE [Concomitant]
     Active Substance: PANTOPRAZOLE
  16. PEPCID [Concomitant]
     Active Substance: FAMOTIDINE
     Indication: Gastrooesophageal reflux disease
  17. PEPCID [Concomitant]
     Active Substance: FAMOTIDINE
  18. PREGABALIN [Concomitant]
     Active Substance: PREGABALIN
  19. PREGABALIN [Concomitant]
     Active Substance: PREGABALIN
  20. SYNTHROID [Concomitant]
     Active Substance: LEVOTHYROXINE SODIUM
  21. SYNTHROID [Concomitant]
     Active Substance: LEVOTHYROXINE SODIUM
  22. DESOXIMETASONE [Concomitant]
     Active Substance: DESOXIMETASONE
  23. VITAMIN B12 [Concomitant]
     Active Substance: CYANOCOBALAMIN
  24. VITAMIN D3 [Concomitant]
     Active Substance: CHOLECALCIFEROL
  25. VITAMIN D3 [Concomitant]
     Active Substance: CHOLECALCIFEROL
  26. SINGULAIR [Concomitant]
     Active Substance: MONTELUKAST SODIUM
  27. BISOPROLOL [Concomitant]
     Active Substance: BISOPROLOL
  28. METOPROLOL [Concomitant]
     Active Substance: METOPROLOL
  29. OMEPRAZOLE [Concomitant]
     Active Substance: OMEPRAZOLE
  30. MENAQUINONE 6 [Concomitant]
     Active Substance: MENAQUINONE 6
  31. ASPIRIN [Concomitant]
     Active Substance: ASPIRIN
  32. BENADRYL [Concomitant]
     Active Substance: DIPHENHYDRAMINE HYDROCHLORIDE
  33. CLARITIN [Concomitant]
     Active Substance: LORATADINE
  34. BISOPROLOL FUMARATE [Concomitant]
     Active Substance: BISOPROLOL FUMARATE
  35. TOPICORT [Concomitant]
     Active Substance: DESOXIMETASONE
  36. METOPROLOLTARTRAT [Concomitant]
  37. SINGULAIR [Concomitant]
     Active Substance: MONTELUKAST SODIUM
     Dosage: 500MG
  38. VITAMIN B12 [Concomitant]
     Active Substance: CYANOCOBALAMIN

REACTIONS (3)
  - Condition aggravated [Unknown]
  - Sleep deficit [Unknown]
  - Product use in unapproved indication [Unknown]
